FAERS Safety Report 8265774-0 (Version None)
Quarter: 2012Q2

REPORT INFORMATION
  Report Type: 
  Country: None (occurrence: None)
  Receive Date: 20120406
  Receipt Date: 20120330
  Transmission Date: 20120825
  Serious: Yes (Other)
  Sender: FDA-Public Use
  Company Number: PHHY2012JP017821

PATIENT
  Age: 73 Year
  Sex: Male

DRUGS (3)
  1. CARBOPLATIN [Suspect]
     Indication: LUNG SQUAMOUS CELL CARCINOMA STAGE III
  2. RADIOTHERAPY [Concomitant]
     Dosage: 50 GY, UNK
  3. PACLITAXEL [Suspect]
     Indication: LUNG SQUAMOUS CELL CARCINOMA STAGE III

REACTIONS (5)
  - PNEUMOTHORAX [None]
  - ASPERGILLOSIS [None]
  - BLOOD ALBUMIN DECREASED [None]
  - PULMONARY FIBROSIS [None]
  - RADIATION PNEUMONITIS [None]
